FAERS Safety Report 14509143 (Version 2)
Quarter: 2018Q1

REPORT INFORMATION
  Report Type: Spontaneous
  Country: BE (occurrence: BE)
  Receive Date: 20180209
  Receipt Date: 20180222
  Transmission Date: 20180509
  Serious: Yes (Other)
  Sender: FDA-Public Use
  Company Number: BE-FRESENIUS KABI-FK201801550

PATIENT
  Age: 22 Year
  Sex: Female

DRUGS (3)
  1. ROPIVACAINE FRESENIUS KABI 7.5MG/ML [Suspect]
     Active Substance: ROPIVACAINE HYDROCHLORIDE
     Route: 065
     Dates: start: 20170823
  2. ROPIVACAINE FRESENIUS KABI 7.5MG/ML [Suspect]
     Active Substance: ROPIVACAINE HYDROCHLORIDE
     Route: 008
     Dates: start: 20170823, end: 20170825
  3. ROPIVACAINE FRESENIUS KABI 7.5MG/ML [Suspect]
     Active Substance: ROPIVACAINE HYDROCHLORIDE
     Indication: EPIDURAL ANALGESIA
     Route: 008
     Dates: start: 20170823

REACTIONS (2)
  - Nerve injury [Not Recovered/Not Resolved]
  - Toxicity to various agents [Not Recovered/Not Resolved]

NARRATIVE: CASE EVENT DATE: 20170824
